FAERS Safety Report 9208384 (Version 1)
Quarter: 2013Q2

REPORT INFORMATION
  Report Type: Spontaneous
  Country: US (occurrence: US)
  Receive Date: 20130404
  Receipt Date: 20130404
  Transmission Date: 20140414
  Serious: No
  Sender: FDA-Public Use
  Company Number: 2008BI030367

PATIENT
  Age: 38 Year
  Sex: Female

DRUGS (2)
  1. TYSABRI [Suspect]
     Indication: MULTIPLE SCLEROSIS
     Route: 042
     Dates: start: 20081107
  2. BENADRYL [Concomitant]
     Indication: PREMEDICATION

REACTIONS (2)
  - Fatigue [Recovered/Resolved with Sequelae]
  - Somnolence [Recovered/Resolved with Sequelae]
